FAERS Safety Report 15602838 (Version 1)
Quarter: 2018Q4

REPORT INFORMATION
  Report Type: Spontaneous
  Country: US (occurrence: US)
  Receive Date: 20181109
  Receipt Date: 20181109
  Transmission Date: 20190205
  Serious: No
  Sender: FDA-Public Use
  Company Number: US-BAYER-2018-201260

PATIENT
  Age: 84 Year
  Sex: Female
  Weight: 72.97 kg

DRUGS (5)
  1. CARVEDILOL. [Concomitant]
     Active Substance: CARVEDILOL
  2. CLONIDINE. [Concomitant]
     Active Substance: CLONIDINE
  3. XANAX [Concomitant]
     Active Substance: ALPRAZOLAM
  4. MIRALAX [Suspect]
     Active Substance: POLYETHYLENE GLYCOL 3350
     Indication: GASTROINTESTINAL DISORDER
     Dosage: 17 G, UNK
     Route: 048
     Dates: start: 201705, end: 20181001
  5. LEVOTHYROXINE. [Concomitant]
     Active Substance: LEVOTHYROXINE

REACTIONS (15)
  - Blood pressure increased [Unknown]
  - Malaise [Unknown]
  - Oral disorder [Unknown]
  - Cystitis bacterial [Unknown]
  - Formication [None]
  - Hypoacusis [Unknown]
  - White blood cell count increased [Unknown]
  - Eye disorder [Unknown]
  - Urinary tract infection [Unknown]
  - Vulvovaginal burning sensation [None]
  - Fear of death [Unknown]
  - Skin burning sensation [Unknown]
  - Blood pressure increased [Unknown]
  - Insomnia [Unknown]
  - Oral discomfort [Unknown]

NARRATIVE: CASE EVENT DATE: 201705
